FAERS Safety Report 9323449 (Version 2)
Quarter: 2013Q3

REPORT INFORMATION
  Report Type: Spontaneous
  Country: US (occurrence: US)
  Receive Date: 20130603
  Receipt Date: 20130723
  Transmission Date: 20140515
  Serious: No
  Sender: FDA-Public Use
  Company Number: US-PFIZER INC-2013167104

PATIENT
  Age: 60 Year
  Sex: Male
  Weight: 90.7 kg

DRUGS (5)
  1. LYRICA [Suspect]
     Indication: NERVE COMPRESSION
     Dosage: 200 MG, 2X/DAY
     Route: 048
     Dates: start: 2012, end: 20130529
  2. TRAZODONE [Concomitant]
     Indication: SLEEP DISORDER
     Dosage: 50 MG DAILY (AT NIGHT) QHS
  3. OMEPRAZOLE [Concomitant]
     Dosage: 20 MG, 2X/DAY
  4. CELEXA [Concomitant]
     Dosage: 20 MG, 1X/DAY
  5. NORCO [Concomitant]
     Dosage: 10/325 MG, Q 4 PRN

REACTIONS (7)
  - Expired drug administered [Unknown]
  - Hypoaesthesia [Not Recovered/Not Resolved]
  - Pain [Not Recovered/Not Resolved]
  - Paraesthesia [Not Recovered/Not Resolved]
  - Feeling abnormal [Unknown]
  - Skin burning sensation [Unknown]
  - Movement disorder [Unknown]
